FAERS Safety Report 12327468 (Version 1)
Quarter: 2016Q2

REPORT INFORMATION
  Report Type: Spontaneous
  Country: US (occurrence: None)
  Receive Date: 20160502
  Receipt Date: 20160502
  Transmission Date: 20160815
  Serious: No
  Sender: FDA-Public Use
  Company Number: None

PATIENT

DRUGS (1)
  1. ENOXAPARIN 40MG/0.4 ML WATSON PHARMA [Suspect]
     Active Substance: ENOXAPARIN

REACTIONS (1)
  - Syringe issue [None]

NARRATIVE: CASE EVENT DATE: 20160425
